FAERS Safety Report 9742899 (Version 1)
Quarter: 2013Q4

REPORT INFORMATION
  Report Type: Spontaneous
  Country: US (occurrence: US)
  Receive Date: 20131210
  Receipt Date: 20131210
  Transmission Date: 20140711
  Serious: No
  Sender: FDA-Public Use
  Company Number: US-VIIV HEALTHCARE LIMITED-A1042101A

PATIENT
  Age: 53 Year
  Sex: Male
  Weight: 95.5 kg

DRUGS (2)
  1. TIVICAY [Suspect]
     Route: 048
     Dates: start: 201309
  2. TRUVADA [Concomitant]

REACTIONS (2)
  - Nausea [Recovered/Resolved]
  - Motion sickness [Recovered/Resolved]
